FAERS Safety Report 16642876 (Version 2)
Quarter: 2019Q3

REPORT INFORMATION
  Report Type: Spontaneous
  Country: IT (occurrence: IT)
  Receive Date: 20190729
  Receipt Date: 20190731
  Transmission Date: 20191004
  Serious: Yes (Hospitalization)
  Sender: FDA-Public Use
  Company Number: IT-PFIZER INC-2019316563

PATIENT
  Age: 48 Year
  Sex: Male

DRUGS (10)
  1. CICLOSPORIN [Suspect]
     Active Substance: CYCLOSPORINE
     Indication: PSORIATIC ARTHROPATHY
     Dosage: 2.5 MG/KG, 1X/DAY
     Route: 065
     Dates: start: 2014, end: 2016
  2. ADALIMUMAB [Suspect]
     Active Substance: ADALIMUMAB
     Indication: PSORIATIC ARTHROPATHY
     Dosage: 40 MG, EVERY 2 WEEKS
     Route: 065
     Dates: start: 2016
  3. MEGLUMINE ANTIMONATE [Concomitant]
     Active Substance: MEGLUMINE ANTIMONIATE
     Indication: PSORIATIC ARTHROPATHY
     Dosage: UNK
     Route: 026
  4. PREDNISONE. [Suspect]
     Active Substance: PREDNISONE
     Indication: PSORIATIC ARTHROPATHY
     Dosage: 25 MG, 1X/DAY
     Route: 065
  5. MINOCYCLINE [Suspect]
     Active Substance: MINOCYCLINE HYDROCHLORIDE
     Dosage: 200 MG, 1X/DAY
     Dates: start: 201709, end: 201805
  6. METHOTREXATE SODIUM. [Suspect]
     Active Substance: METHOTREXATE SODIUM
     Indication: PSORIATIC ARTHROPATHY
     Dosage: 7.5 MG, WEEKLY
     Route: 065
     Dates: end: 2016
  7. MOXIFLOXACIN. [Suspect]
     Active Substance: MOXIFLOXACIN
     Dosage: 400 MG, 1X/DAY
     Dates: start: 201709, end: 201807
  8. APREMILAST [Suspect]
     Active Substance: APREMILAST
     Indication: PSORIATIC ARTHROPATHY
     Dosage: 60 MG, 1X/DAY
     Route: 048
     Dates: end: 201709
  9. ADALIMUMAB [Suspect]
     Active Substance: ADALIMUMAB
     Dosage: 80 MG, UNK (AT FIRST ADMINISTRATION)
     Route: 065
     Dates: start: 2016
  10. ETHAMBUTOL [Suspect]
     Active Substance: ETHAMBUTOL HYDROCHLORIDE
     Dosage: 1200 MG, 1X/DAY
     Route: 065
     Dates: start: 201709, end: 201711

REACTIONS (6)
  - Lymphadenopathy [Recovered/Resolved]
  - Dizziness [Unknown]
  - Lung infection [Recovered/Resolved]
  - Mycobacterium fortuitum infection [Recovered/Resolved]
  - Lung consolidation [Recovered/Resolved]
  - Cutaneous leishmaniasis [Recovered/Resolved]

NARRATIVE: CASE EVENT DATE: 201702
